FAERS Safety Report 9910855 (Version 1)
Quarter: 2014Q1

REPORT INFORMATION
  Report Type: Spontaneous
  Country: US (occurrence: US)
  Receive Date: 20140219
  Receipt Date: 20140219
  Transmission Date: 20141002
  Serious: Yes (Hospitalization)
  Sender: FDA-Public Use
  Company Number: US-CUBIST PHARMACEUTICAL, INC.-2014CBST000261

PATIENT
  Sex: 0

DRUGS (4)
  1. CUBICIN [Suspect]
     Indication: FOLLICULITIS
     Dosage: UNK UNK, UNK
     Route: 065
  2. CEPHALEXIN                         /00145501/ [Concomitant]
     Indication: FOLLICULITIS
     Dosage: UNK, UNK,UNK
     Route: 065
  3. CLINDAMYCIN                        /00166002/ [Concomitant]
     Indication: FOLLICULITIS
     Dosage: UNK UNK, UNK
     Route: 065
  4. CEFADROXIL                         /00554703/ [Concomitant]
     Indication: FOLLICULITIS
     Dosage: UNK, UNK, UNK
     Route: 065

REACTIONS (2)
  - Alopecia scarring [Unknown]
  - Drug ineffective [None]
